FAERS Safety Report 17420754 (Version 1)
Quarter: 2020Q1

REPORT INFORMATION
  Report Type: Spontaneous
  Country: US (occurrence: US)
  Receive Date: 20200214
  Receipt Date: 20200214
  Transmission Date: 20200409
  Serious: No
  Sender: FDA-Public Use
  Company Number: US-PFIZER INC-2020065645

PATIENT
  Age: 67 Year
  Sex: Male
  Weight: 68.4 kg

DRUGS (2)
  1. VIAGRA [Concomitant]
     Active Substance: SILDENAFIL CITRATE
     Indication: ERECTILE DYSFUNCTION
     Dosage: 50 MG, EVERY DAY OR EVERY OTHER DAY
     Dates: start: 1990
  2. SILDENAFIL CITRATE. [Suspect]
     Active Substance: SILDENAFIL CITRATE
     Indication: ERECTILE DYSFUNCTION
     Dosage: 25 MG, ONE OR TWO (USUALLY TWO BUT MAXIMUM DOSAGE IS FOUR), EVERY DAY OR EVERY OTHER DAY
     Dates: start: 2015

REACTIONS (1)
  - Drug ineffective [Unknown]
